FAERS Safety Report 8445261-7 (Version None)
Quarter: 2012Q2

REPORT INFORMATION
  Report Type: 
  Country: None (occurrence: None)
  Receive Date: 20120618
  Receipt Date: 20120608
  Transmission Date: 20120825
  Serious: Yes (Hospitalization)
  Sender: FDA-Public Use
  Company Number: GB-JNJFOC-20120606170

PATIENT
  Sex: Female

DRUGS (2)
  1. RIVAROXABAN [Suspect]
     Indication: HIP SURGERY
     Route: 048
  2. RIVAROXABAN [Suspect]
     Indication: THROMBOSIS PROPHYLAXIS
     Route: 048

REACTIONS (2)
  - DEEP VEIN THROMBOSIS [None]
  - POST PROCEDURAL HAEMORRHAGE [None]
